FAERS Safety Report 24131715 (Version 1)
Quarter: 2024Q3

REPORT INFORMATION
  Report Type: Spontaneous
  Country: US (occurrence: None)
  Receive Date: 20240723
  Receipt Date: 20240723
  Transmission Date: 20241017
  Serious: Yes (unspecified)
  Sender: Public
  Company Number: None

PATIENT
  Age: 61 Year
  Sex: Male
  Weight: 92.3 kg

DRUGS (1)
  1. RESMETIROM [Suspect]
     Active Substance: RESMETIROM
     Indication: Steatohepatitis
     Dosage: DAILLY ORAL ?
     Route: 048
     Dates: start: 20240705, end: 20240716

REACTIONS (3)
  - Pruritus [None]
  - Dizziness [None]
  - Faeces discoloured [None]

NARRATIVE: CASE EVENT DATE: 20240716
